FAERS Safety Report 16679520 (Version 1)
Quarter: 2019Q3

REPORT INFORMATION
  Report Type: Report from Study
  Country: MX (occurrence: MX)
  Receive Date: 20190807
  Receipt Date: 20190807
  Transmission Date: 20191004
  Serious: Yes (Death, Hospitalization, Other)
  Sender: FDA-Public Use
  Company Number: PHHY2017MX054967

PATIENT
  Age: 76 Year
  Sex: Male
  Weight: 106 kg

DRUGS (2)
  1. EXFORGE HCT [Suspect]
     Active Substance: AMLODIPINE BESYLATE\HYDROCHLOROTHIAZIDE\VALSARTAN
     Indication: HYPERTENSION
     Dosage: 1 DF (AMLODIPINE 5 MG, HYDROCHLOROTHIAZIDE 12.5 MG, VALSARTAN 160 MG), QD
     Route: 048
     Dates: end: 20190520
  2. ASPIRIN. [Concomitant]
     Active Substance: ASPIRIN
     Indication: PRODUCT USED FOR UNKNOWN INDICATION
     Route: 065

REACTIONS (15)
  - Thyroid disorder [Unknown]
  - Infarction [Unknown]
  - Haemorrhage [Unknown]
  - Weight increased [Unknown]
  - Brain hypoxia [Unknown]
  - Swelling [Unknown]
  - Pulmonary oedema [Unknown]
  - Syncope [Unknown]
  - Red blood cell count increased [Unknown]
  - Cardiac arrest [Fatal]
  - Hypoaesthesia [Unknown]
  - Eye swelling [Unknown]
  - Cerebral ischaemia [Unknown]
  - Arrhythmia [Unknown]
  - Oedema [Unknown]

NARRATIVE: CASE EVENT DATE: 201601
